FAERS Safety Report 6323933-8 (Version None)
Quarter: 2009Q3

REPORT INFORMATION
  Report Type: 
  Country: None (occurrence: None)
  Receive Date: 20090824
  Receipt Date: 20090817
  Transmission Date: 20100115
  Serious: Yes (Congenital Anomaly)
  Sender: FDA-Public Use
  Company Number: A0752254A

PATIENT
  Sex: Female

DRUGS (6)
  1. PAROXETINE HCL [Suspect]
     Dosage: 20MG TWICE PER DAY
  2. VITAMIN TAB [Concomitant]
  3. AZITHROMYCIN [Concomitant]
  4. PENICILLIN [Concomitant]
  5. RANITIDINE [Concomitant]
  6. UNSPECIFIED MEDICATION [Concomitant]

REACTIONS (5)
  - ATRIAL SEPTAL DEFECT [None]
  - CARDIAC DISORDER [None]
  - DRUG EXPOSURE DURING PREGNANCY [None]
  - LUNG DISORDER [None]
  - VENTRICULAR SEPTAL DEFECT [None]
